FAERS Safety Report 7952815-0 (Version None)
Quarter: 2011Q4

REPORT INFORMATION
  Report Type: 
  Country: None (occurrence: None)
  Receive Date: 20111201
  Receipt Date: 20111121
  Transmission Date: 20120403
  Serious: Yes (Other)
  Sender: FDA-Public Use
  Company Number: GR-ELI_LILLY_AND_COMPANY-GR201111006337

PATIENT
  Age: 61 Year
  Sex: Female
  Weight: 52 kg

DRUGS (6)
  1. MYCOPHENOLATE MOFETIL [Concomitant]
     Indication: LIVER TRANSPLANT
     Dosage: 750 MG, QD
     Route: 048
  2. FORTEO [Suspect]
     Indication: OSTEOPOROSIS
     Dosage: 20 UG, QD
     Route: 058
     Dates: start: 20100705, end: 20100920
  3. CALCIUM [Concomitant]
     Indication: OSTEOPOROSIS
     Route: 048
  4. CYCLOSPORINE [Concomitant]
     Indication: LIVER TRANSPLANT
     Dosage: 50 MG, QD
     Route: 048
  5. VITAMIN D [Concomitant]
     Indication: OSTEOPOROSIS
     Route: 048
  6. ROSUVASTATIN [Concomitant]
     Indication: HYPERCHOLESTEROLAEMIA
     Dosage: 10 MG, QD
     Route: 048

REACTIONS (2)
  - ASPARTATE AMINOTRANSFERASE INCREASED [None]
  - ALANINE AMINOTRANSFERASE INCREASED [None]
